FAERS Safety Report 8264874-9 (Version None)
Quarter: 2012Q2

REPORT INFORMATION
  Report Type: 
  Country: None (occurrence: None)
  Receive Date: 20120403
  Receipt Date: 20120319
  Transmission Date: 20120825
  Serious: Yes (Hospitalization)
  Sender: FDA-Public Use
  Company Number: 2012MPI00116

PATIENT
  Age: 50 Year
  Sex: Male

DRUGS (5)
  1. HIRUDOID (MUCOPOLYSACCHARIDE POLYSULFURIC ACID EASTER) [Concomitant]
  2. BRENTUXIMAB VEDOTIN (BRENTUXIMAB VEDOTIN) INJECTION [Suspect]
     Indication: HODGKIN'S DISEASE
     Dosage: 1.2 MG/KG, QCYCLE, INTRAVENOUS
     Route: 042
     Dates: start: 20111017
  3. ACETAMINOPHEN [Concomitant]
  4. INTAL [Concomitant]
  5. ALENAPION (EPINASTINE HYDROCHLORIDE) [Concomitant]

REACTIONS (7)
  - MENINGITIS ASEPTIC [None]
  - NAUSEA [None]
  - VOMITING [None]
  - DECREASED APPETITE [None]
  - CONSTIPATION [None]
  - DEHYDRATION [None]
  - MENINGITIS VIRAL [None]
